FAERS Safety Report 25479115 (Version 1)
Quarter: 2025Q2

REPORT INFORMATION
  Report Type: Spontaneous
  Country: CA (occurrence: CA)
  Receive Date: 20250625
  Receipt Date: 20250625
  Transmission Date: 20250717
  Serious: Yes (Other)
  Sender: RECKITT BENCKISER
  Company Number: CA-INDIVIOR US-INDV-163729-2025

PATIENT

DRUGS (8)
  1. SUBLOCADE [Suspect]
     Active Substance: BUPRENORPHINE
     Indication: Drug use disorder
     Dosage: 300 MILLIGRAM, QMO (PREVIOUS INJECTIONS)
     Route: 058
     Dates: start: 20221014
  2. SUBLOCADE [Suspect]
     Active Substance: BUPRENORPHINE
     Dosage: 300 MILLIGRAM, QMO  (RESTARTED INJECTIONS AND RECEIVED 3)
     Route: 065
  3. SUBLOCADE [Suspect]
     Active Substance: BUPRENORPHINE
     Indication: Drug use disorder
     Dosage: 100 MILLIGRAM, QMO (PREVIOUS INJECTIONS)
     Route: 058
  4. SUBLOCADE [Suspect]
     Active Substance: BUPRENORPHINE
     Dosage: 100 MILLIGRAM, QMO (RESTARTED INJECTIONS AND RECEIVED 4)
     Route: 058
     Dates: start: 2025
  5. CLONAZEPAM [Concomitant]
     Active Substance: CLONAZEPAM
     Indication: Product used for unknown indication
     Route: 065
  6. LEFLUNOMIDE [Concomitant]
     Active Substance: LEFLUNOMIDE
     Indication: Product used for unknown indication
     Route: 065
  7. DULOXETINE [Concomitant]
     Active Substance: DULOXETINE
     Indication: Product used for unknown indication
     Route: 065
  8. SYMBICORT [Concomitant]
     Active Substance: BUDESONIDE\FORMOTEROL FUMARATE DIHYDRATE
     Indication: Product used for unknown indication
     Route: 065
     Dates: start: 2023

REACTIONS (4)
  - Fracture [Unknown]
  - Pneumonia [Unknown]
  - Victim of crime [Unknown]
  - Injection site induration [Recovering/Resolving]

NARRATIVE: CASE EVENT DATE: 20241126
